FAERS Safety Report 7707306-9 (Version None)
Quarter: 2011Q3

REPORT INFORMATION
  Report Type: 
  Country: None (occurrence: None)
  Receive Date: 20110824
  Receipt Date: 20110822
  Transmission Date: 20111222
  Serious: Yes (Other)
  Sender: FDA-Public Use
  Company Number: PHHY2011FR73706

PATIENT
  Age: 25 Year
  Sex: Female

DRUGS (1)
  1. METHERGINE [Suspect]
     Dosage: 0.2 MG, UNK

REACTIONS (4)
  - BLOOD PRESSURE DIASTOLIC INCREASED [None]
  - TOXIC ENCEPHALOPATHY [None]
  - HYPERTENSIVE ENCEPHALOPATHY [None]
  - CONVULSION [None]
